FAERS Safety Report 17330207 (Version 2)
Quarter: 2020Q1

REPORT INFORMATION
  Report Type: Report from Study
  Country: US (occurrence: US)
  Receive Date: 20200127
  Receipt Date: 20200203
  Transmission Date: 20200409
  Serious: Yes (Hospitalization)
  Sender: FDA-Public Use
  Company Number: US-ACTELION-A-NJ2020-200860

PATIENT
  Age: 71 Year
  Sex: Female

DRUGS (9)
  1. OPSUMIT [Suspect]
     Active Substance: MACITENTAN
     Indication: PULMONARY ARTERIAL HYPERTENSION
     Dosage: 10 MG
     Route: 048
     Dates: start: 20191224
  2. SPIRIVA [Concomitant]
     Active Substance: TIOTROPIUM BROMIDE MONOHYDRATE
  3. SYMBICORT [Concomitant]
     Active Substance: BUDESONIDE\FORMOTEROL FUMARATE DIHYDRATE
  4. SILDENAFIL CITRATE. [Concomitant]
     Active Substance: SILDENAFIL CITRATE
  5. AMLODIPINE BESYLATE. [Concomitant]
     Active Substance: AMLODIPINE BESYLATE
  6. SPIRONOLACTONE. [Concomitant]
     Active Substance: SPIRONOLACTONE
  7. LASIX [Concomitant]
     Active Substance: FUROSEMIDE
  8. CELEXA [Concomitant]
     Active Substance: CITALOPRAM HYDROBROMIDE
  9. PEPCID [Concomitant]
     Active Substance: FAMOTIDINE

REACTIONS (8)
  - Headache [Unknown]
  - Dyspnoea exertional [Unknown]
  - Pulmonary arterial hypertension [Unknown]
  - Pulmonary oedema [Unknown]
  - Oedema peripheral [Unknown]
  - Decreased appetite [Unknown]
  - Condition aggravated [Unknown]
  - Disease complication [Unknown]

NARRATIVE: CASE EVENT DATE: 20191224
